FAERS Safety Report 5030900-3 (Version None)
Quarter: 2006Q2

REPORT INFORMATION
  Report Type: 
  Country: None (occurrence: None)
  Receive Date: 20060619
  Receipt Date: 20060612
  Transmission Date: 20061013
  Serious: Yes (Death)
  Sender: FDA-Public Use
  Company Number: DE-2006-006875

PATIENT
  Age: 64 Year
  Sex: Male

DRUGS (9)
  1. CAMPATH [Suspect]
     Indication: CHRONIC LYMPHOCYTIC LEUKAEMIA
     Dosage: SEE IMAGE
     Route: 042
  2. CYCLOPHOSPHAMIDE [Concomitant]
  3. FLUDARABINE PHOSPHATE [Concomitant]
  4. DEXAMETHASONE TAB [Concomitant]
  5. CARMUSTINE [Concomitant]
  6. ETOPOSIDE [Concomitant]
  7. CYTARABINE [Concomitant]
  8. MELPHALAN [Concomitant]
  9. G-CSF (GRANULOCYTE COLONY STIMULATING FACTOR) [Concomitant]

REACTIONS (4)
  - GRAFT VERSUS HOST DISEASE [None]
  - GRAFT VERSUS HOST DISEASE IN SKIN [None]
  - PANCYTOPENIA [None]
  - PNEUMONIA [None]
